FAERS Safety Report 5091477-X (Version None)
Quarter: 2006Q3

REPORT INFORMATION
  Report Type: 
  Country: None (occurrence: None)
  Receive Date: 20060829
  Receipt Date: 20060821
  Transmission Date: 20061208
  Serious: Yes (Hospitalization)
  Sender: FDA-Public Use
  Company Number: FR-GLAXOSMITHKLINE-B0434872A

PATIENT
  Age: 81 Year
  Sex: Female
  Weight: 60 kg

DRUGS (3)
  1. AMOXICILLIN [Suspect]
     Dosage: 2G PER DAY
     Route: 048
     Dates: start: 20060706, end: 20060712
  2. NEXIUM [Suspect]
     Dosage: 1UNIT PER DAY
     Route: 048
     Dates: start: 20060706, end: 20060726
  3. ZECLAR [Suspect]
     Dosage: 500MG PER DAY
     Route: 048
     Dates: start: 20060705, end: 20060712

REACTIONS (7)
  - ANAEMIA [None]
  - EPISTAXIS [None]
  - FALL [None]
  - GINGIVAL BLEEDING [None]
  - HEAD INJURY [None]
  - HYPONATRAEMIA [None]
  - VOMITING [None]
